FAERS Safety Report 23563556 (Version 1)
Quarter: 2024Q1

REPORT INFORMATION
  Report Type: Spontaneous
  Country: SE (occurrence: SE)
  Receive Date: 20240226
  Receipt Date: 20240226
  Transmission Date: 20240409
  Serious: Yes (Other)
  Sender: FDA-Public Use
  Company Number: None

PATIENT
  Age: 74 Year
  Sex: Male

DRUGS (1)
  1. HYRIMOZ [Suspect]
     Active Substance: ADALIMUMAB-ADAZ
     Indication: Arthritis
     Dosage: UNK
     Route: 065
     Dates: start: 20230511, end: 20231208

REACTIONS (1)
  - Torticollis [Not Recovered/Not Resolved]

NARRATIVE: CASE EVENT DATE: 20230628
